FAERS Safety Report 6757732-X (Version None)
Quarter: 2010Q2

REPORT INFORMATION
  Report Type: 
  Country: None (occurrence: None)
  Receive Date: 20100607
  Receipt Date: 20100527
  Transmission Date: 20101027
  Serious: Yes (Other)
  Sender: FDA-Public Use
  Company Number: US-BAYER-201024115NA

PATIENT
  Sex: Female

DRUGS (1)
  1. MIRENA [Suspect]
     Indication: DRUG USE FOR UNKNOWN INDICATION
     Dosage: FREQUENCY: CONTINUOUS
     Route: 015

REACTIONS (4)
  - ABDOMINAL PAIN [None]
  - ADNEXA UTERI PAIN [None]
  - DEVICE DISLOCATION [None]
  - URINARY TRACT INFECTION [None]
